FAERS Safety Report 8517326 (Version 3)
Quarter: 2013Q4

REPORT INFORMATION
  Report Type: Spontaneous
  Country: US (occurrence: US)
  Receive Date: 20120417
  Receipt Date: 20131224
  Transmission Date: 20140711
  Serious: Yes (Other)
  Sender: FDA-Public Use
  Company Number: US-ASTRAZENECA-2011SE42004

PATIENT
  Age: 63 Year
  Sex: Female
  Weight: 69.9 kg

DRUGS (25)
  1. NEXIUM [Suspect]
     Indication: GASTROOESOPHAGEAL REFLUX DISEASE
     Route: 048
     Dates: start: 2007, end: 201308
  2. NEXIUM [Suspect]
     Indication: SCLERODERMA
     Route: 048
     Dates: start: 2007, end: 201308
  3. NEXIUM [Suspect]
     Indication: GASTROOESOPHAGEAL REFLUX DISEASE
     Route: 048
     Dates: start: 2007, end: 201306
  4. NEXIUM [Suspect]
     Indication: SCLERODERMA
     Route: 048
     Dates: start: 2007, end: 201306
  5. LISINOPRIL [Suspect]
     Indication: BLOOD PRESSURE ABNORMAL
     Route: 048
     Dates: start: 2011
  6. PANTOPRAZOLE [Concomitant]
     Indication: GASTROOESOPHAGEAL REFLUX DISEASE
     Route: 048
     Dates: start: 201306
  7. ONDANSETRON [Concomitant]
     Indication: NAUSEA
     Route: 048
     Dates: start: 201306
  8. BYETTA [Concomitant]
     Indication: DIABETES MELLITUS
     Dosage: BID
     Route: 058
  9. COMBIVENT [Concomitant]
     Indication: RESPIRATORY DISORDER
     Dosage: 2 PUFFS QID
     Route: 055
     Dates: start: 201307
  10. MONTELUKAST [Concomitant]
     Indication: SINUS DISORDER
     Route: 048
     Dates: start: 2013
  11. LORAZEPAM [Concomitant]
     Indication: ANXIETY
     Route: 048
     Dates: start: 2013
  12. METHADONE [Concomitant]
     Indication: PAIN
     Route: 048
     Dates: start: 201302
  13. TRAZADONE [Concomitant]
     Indication: SLEEP DISORDER
     Route: 048
     Dates: start: 2013
  14. BACLOFEN [Concomitant]
     Indication: MUSCLE RELAXANT THERAPY
     Route: 048
     Dates: start: 201302
  15. SLUTICASONE [Concomitant]
     Indication: MULTIPLE ALLERGIES
     Route: 048
     Dates: start: 2013
  16. BAYER ASPIRIN [Concomitant]
     Indication: CARDIAC DISORDER
     Route: 048
     Dates: start: 2010
  17. ATORVASTATIN [Concomitant]
     Indication: BLOOD CHOLESTEROL ABNORMAL
     Route: 048
     Dates: start: 201303
  18. ABILIFY [Concomitant]
     Indication: DEPRESSION
     Route: 048
     Dates: start: 2011
  19. ACYCLOVIR [Concomitant]
     Indication: INFECTION PROPHYLAXIS
     Route: 048
     Dates: start: 1998
  20. SUCRALFATE [Concomitant]
     Indication: OESOPHAGEAL DISORDER
     Route: 048
     Dates: start: 2008
  21. FUROSEMIDE [Concomitant]
     Indication: FLUID RETENTION
     Route: 048
     Dates: start: 2000
  22. CYMBALTA [Concomitant]
     Indication: DEPRESSION
     Route: 048
     Dates: start: 2010
  23. KLOR-CON [Concomitant]
     Indication: ELECTROLYTE SUBSTITUTION THERAPY
     Route: 048
     Dates: start: 201302
  24. ZYRTEC [Concomitant]
     Indication: SINUS DISORDER
     Dosage: DAILY
     Route: 048
     Dates: start: 201307
  25. OVER THE COUNTER ESTROGEN [Concomitant]
     Dosage: BID
     Route: 048
     Dates: start: 201308

REACTIONS (6)
  - Oesophageal rupture [Unknown]
  - Hypertension [Unknown]
  - Oesophageal stenosis [Unknown]
  - Abdominal pain upper [Unknown]
  - Vomiting [Unknown]
  - Intentional drug misuse [Unknown]
